FAERS Safety Report 4677479-3 (Version None)
Quarter: 2005Q2

REPORT INFORMATION
  Report Type: 
  Country: None (occurrence: None)
  Receive Date: 20050531
  Receipt Date: 20050520
  Transmission Date: 20051028
  Serious: Yes (Hospitalization)
  Sender: FDA-Public Use
  Company Number: US-BRISTOL-MYERS SQUIBB COMPANY-12975967

PATIENT
  Age: 76 Year
  Sex: Male
  Weight: 102 kg

DRUGS (5)
  1. COUMADIN [Suspect]
     Indication: PROPHYLAXIS
     Dosage: 5MG ALTERNATING WITH 7.5MG FROM 16-FEB-2005 TO 10-MAR-2005, 28-MAR-2005 TO 15-APR-05
     Dates: start: 20050216
  2. ALEVE COLD AND SINUS [Suspect]
     Indication: NASOPHARYNGITIS
     Dosage: 220/120 MG FIVE TIMES BETWEEN 03-APR-2005 AND 10-APR-2005.
     Route: 048
     Dates: start: 20050403, end: 20050410
  3. DRISTAN [Suspect]
     Dates: start: 20050401
  4. CALCIUM GLUCONATE [Concomitant]
  5. GEMFIBROZIL [Concomitant]

REACTIONS (5)
  - DUODENITIS [None]
  - DYSPNOEA [None]
  - FAECES DISCOLOURED [None]
  - HAEMOGLOBIN DECREASED [None]
  - HIATUS HERNIA [None]
